FAERS Safety Report 6130586-0 (Version None)
Quarter: 2009Q1

REPORT INFORMATION
  Report Type: 
  Country: None (occurrence: None)
  Receive Date: 20090323
  Receipt Date: 20090308
  Transmission Date: 20090719
  Serious: Yes (Other)
  Sender: FDA-Public Use
  Company Number: 2007S1006877

PATIENT
  Age: 73 Year
  Sex: Female
  Weight: 54.8852 kg

DRUGS (6)
  1. PHOSPHOSODA FLAVOR NOT SPECIFIED [Suspect]
     Indication: COLONOSCOPY
     Dosage: 90 ML; TOTAL; PO
     Route: 048
     Dates: start: 20050819, end: 20050820
  2. DIOVAN [Concomitant]
  3. FOSAMAX PROTONIX [Concomitant]
  4. CALCIUM [Concomitant]
  5. VITAMIN D [Concomitant]
  6. FLEET ENEMA (SODIUM PHOSPHATE) [Concomitant]

REACTIONS (3)
  - ACUTE PRERENAL FAILURE [None]
  - RENAL FAILURE ACUTE [None]
  - RENAL INJURY [None]
